FAERS Safety Report 12267704 (Version 1)
Quarter: 2016Q2

REPORT INFORMATION
  Report Type: Spontaneous
  Country: VE (occurrence: VE)
  Receive Date: 20160414
  Receipt Date: 20160414
  Transmission Date: 20160815
  Serious: Yes (Hospitalization, Other)
  Sender: FDA-Public Use
  Company Number: PHHY2016VE049979

PATIENT
  Sex: Female

DRUGS (4)
  1. ZALDIAR [Concomitant]
     Active Substance: ACETAMINOPHEN\TRAMADOL HYDROCHLORIDE
     Indication: PAIN
     Dosage: 37.5 MG, QD
     Route: 065
  2. LYRICA [Concomitant]
     Active Substance: PREGABALIN
     Indication: OSTEOPOROSIS
     Dosage: 75 MG, QD
     Route: 065
  3. DIOVAN [Suspect]
     Active Substance: VALSARTAN
     Indication: HYPERTENSION
     Dosage: 160 MG, QD
     Route: 048
  4. AKINETON [Concomitant]
     Active Substance: BIPERIDEN HYDROCHLORIDE
     Indication: MEMORY IMPAIRMENT
     Dosage: 2 MG, QD
     Route: 065

REACTIONS (6)
  - Syncope [Unknown]
  - Malaise [Unknown]
  - Tremor [Unknown]
  - Chest discomfort [Unknown]
  - Cerebrovascular accident [Unknown]
  - Presyncope [Unknown]
